FAERS Safety Report 6035325-X (Version None)
Quarter: 2009Q1

REPORT INFORMATION
  Report Type: 
  Country: None (occurrence: None)
  Receive Date: 20090108
  Receipt Date: 20081225
  Transmission Date: 20090719
  Serious: Yes (Hospitalization)
  Sender: FDA-Public Use
  Company Number: 2008SP025557

PATIENT
  Age: 4 Year
  Sex: Male
  Weight: 20 kg

DRUGS (37)
  1. POSACONAZOLE [Suspect]
     Indication: DRUG USE FOR UNKNOWN INDICATION
     Dosage: 120 MG;BID;PO
     Route: 048
     Dates: start: 20081124, end: 20081205
  2. METHOTREXATE [Suspect]
     Indication: ACUTE LYMPHOCYTIC LEUKAEMIA
     Dosage: 3900 MG;QD;IV
     Route: 042
     Dates: start: 20081219, end: 20081219
  3. VINDESINE [Suspect]
     Indication: LEUKAEMIA
     Dosage: 2.3 MG;QD;IV
     Route: 042
     Dates: start: 20081219, end: 20081219
  4. IFOSFAMIDE [Suspect]
     Indication: LEUKAEMIA
     Dosage: 620 MG;BID;IV, 620 MG;QD;IV
     Route: 042
     Dates: start: 20081220, end: 20081221
  5. IFOSFAMIDE [Suspect]
     Indication: LEUKAEMIA
     Dosage: 620 MG;BID;IV, 620 MG;QD;IV
     Route: 042
     Dates: start: 20081222, end: 20081222
  6. GRANISETRON HCL [Suspect]
     Indication: PROPHYLAXIS
     Dosage: 1 MG; ;IV
     Route: 042
     Dates: start: 20081219
  7. DEXAMETHASONE [Suspect]
     Indication: LEUKAEMIA
     Dosage: 5 MG;TID;PO
     Route: 048
     Dates: start: 20081219, end: 20081223
  8. FLUCONAZOLE [Concomitant]
  9. COTRIM [Concomitant]
  10. TAZOBACTAM [Concomitant]
  11. PLATELETS [Concomitant]
  12. GRANOCYTE [Concomitant]
  13. AMPHOTERICIN B [Concomitant]
  14. CYCLOPHOSPHAMIDE [Concomitant]
  15. UROMITEXAN [Concomitant]
  16. SODIUM CHLORIDE 0.9% [Concomitant]
  17. DEXTROSE 5% [Concomitant]
  18. POTASSIUM CHLORIDE [Concomitant]
  19. VINCRISTINE [Concomitant]
  20. ASPARAGINASE [Concomitant]
  21. CYTARABINE [Concomitant]
  22. SODIUM BICARBONATE [Concomitant]
  23. LEUKOVORIN [Concomitant]
  24. ISOPTODEX [Concomitant]
  25. BENADON [Concomitant]
  26. VOMEX [Concomitant]
  27. LEICICARBON [Concomitant]
  28. NACL 0.9% / GLUCOSE 5% [Concomitant]
  29. KYBERNIN [Concomitant]
  30. PURINETHOL [Concomitant]
  31. PREDNISONE [Concomitant]
  32. ARA-C [Concomitant]
  33. LEUKOVORIN [Concomitant]
  34. UNKNOWN [Concomitant]
  35. UROMITEXAN [Concomitant]
  36. RED BLOOD CELL TRANSFUSION [Concomitant]
  37. METHOTREXATE [Concomitant]

REACTIONS (4)
  - ALANINE AMINOTRANSFERASE INCREASED [None]
  - ASPARTATE AMINOTRANSFERASE INCREASED [None]
  - CHEMOTHERAPEUTIC DRUG LEVEL INCREASED [None]
  - GAMMA-GLUTAMYLTRANSFERASE INCREASED [None]
